FAERS Safety Report 4500645-4 (Version None)
Quarter: 2004Q4

REPORT INFORMATION
  Report Type: 
  Country: None (occurrence: None)
  Receive Date: 20041115
  Receipt Date: 20041103
  Transmission Date: 20050328
  Serious: Yes (Other)
  Sender: FDA-Public Use
  Company Number: GR-AMGEN-UK098181

PATIENT

DRUGS (1)
  1. NEUPOGEN [Suspect]
     Indication: CHEMOTHERAPY
     Route: 058

REACTIONS (2)
  - NEUTROPHIL COUNT INCREASED [None]
  - TUMOUR MARKER INCREASED [None]
